FAERS Safety Report 12872590 (Version 1)
Quarter: 2016Q4

REPORT INFORMATION
  Report Type: Spontaneous
  Country: US (occurrence: US)
  Receive Date: 20161021
  Receipt Date: 20161021
  Transmission Date: 20170207
  Serious: Yes (Death)
  Sender: FDA-Public Use
  Company Number: US-SUN PHARMACEUTICAL INDUSTRIES LTD-2016US-126310

PATIENT
  Age: 23 Year
  Sex: Female

DRUGS (7)
  1. DEXAMETHASONE. [Suspect]
     Active Substance: DEXAMETHASONE
     Indication: IMMUNE RECONSTITUTION INFLAMMATORY SYNDROME
     Dosage: 2 MG, TID
     Route: 048
  2. FLUCONAZOLE. [Concomitant]
     Active Substance: FLUCONAZOLE
     Indication: CRYPTOCOCCOSIS
     Route: 065
  3. DEXAMETHASONE. [Suspect]
     Active Substance: DEXAMETHASONE
     Indication: PRODUCT USED FOR UNKNOWN INDICATION
     Dosage: 2 MG, QID
     Route: 048
  4. AMPHOTERICIN B. [Concomitant]
     Active Substance: AMPHOTERICIN B
     Indication: CRYPTOCOCCOSIS
     Dosage: 5 MG/KG, QD
     Route: 048
  5. DEXAMETHASONE. [Suspect]
     Active Substance: DEXAMETHASONE
     Indication: REDUCTION OF INCREASED INTRACRANIAL PRESSURE
     Dosage: 2 MG, QID
     Route: 048
  6. AMPHOTERICIN B. [Concomitant]
     Active Substance: AMPHOTERICIN B
     Indication: CRYPTOCOCCOSIS
     Route: 065
  7. FLUCYTOSINE. [Concomitant]
     Active Substance: FLUCYTOSINE
     Indication: CRYPTOCOCCOSIS
     Dosage: 3 G, QID
     Route: 042

REACTIONS (3)
  - Listeriosis [Fatal]
  - Cryptococcosis [Fatal]
  - Condition aggravated [Fatal]
